FAERS Safety Report 11656799 (Version 1)
Quarter: 2015Q4

REPORT INFORMATION
  Report Type: Spontaneous
  Country: BE (occurrence: BE)
  Receive Date: 20151023
  Receipt Date: 20151023
  Transmission Date: 20160304
  Serious: Yes (Other)
  Sender: FDA-Public Use
  Company Number: BE-ACTAVIS-2015-22051

PATIENT
  Sex: Male

DRUGS (6)
  1. ATOSIBAN [Concomitant]
     Active Substance: ATOSIBAN
     Indication: PREMATURE LABOUR
     Dosage: UNK
     Route: 065
  2. GLIBENCLAMIDE (UNKNOWN) [Suspect]
     Active Substance: GLYBURIDE
     Dosage: UNK
     Route: 063
  3. NIFEDIPINE. [Concomitant]
     Active Substance: NIFEDIPINE
     Indication: PREMATURE LABOUR
     Dosage: UNK
     Route: 065
  4. GLIBENCLAMIDE (UNKNOWN) [Suspect]
     Active Substance: GLYBURIDE
     Indication: NEONATAL DIABETES MELLITUS
     Dosage: 85 MG, DAILY
     Route: 064
  5. GLIBENCLAMIDE (UNKNOWN) [Suspect]
     Active Substance: GLYBURIDE
     Dosage: 90 MG, DAILY
     Route: 064
  6. BETAMETHASONE. [Concomitant]
     Active Substance: BETAMETHASONE
     Indication: PREMATURE LABOUR
     Dosage: UNK
     Route: 065

REACTIONS (5)
  - Hypoglycaemia neonatal [Recovered/Resolved]
  - Hyperinsulinaemia [Recovered/Resolved]
  - Exposure during breast feeding [Unknown]
  - Macrosomia [Unknown]
  - Foetal exposure during pregnancy [Unknown]
